FAERS Safety Report 5287733-2 (Version None)
Quarter: 2007Q2

REPORT INFORMATION
  Report Type: 
  Country: None (occurrence: None)
  Receive Date: 20070403
  Receipt Date: 20070403
  Transmission Date: 20071010
  Serious: Yes (Hospitalization)
  Sender: FDA-Public Use
  Company Number: None

PATIENT
  Sex: Female
  Weight: 72 kg

DRUGS (2)
  1. INTRAVENOUS IMMUNE GLOBULIN UNKNOWN UNKNOWN [Suspect]
     Indication: IDIOPATHIC THROMBOCYTOPENIC PURPURA
     Dosage: IV
     Route: 042
     Dates: start: 20070329, end: 20070330
  2. BENADRYL [Concomitant]

REACTIONS (7)
  - HEADACHE [None]
  - MENINGITIS ASEPTIC [None]
  - MUSCULOSKELETAL STIFFNESS [None]
  - NAUSEA [None]
  - PHONOPHOBIA [None]
  - PHOTOPHOBIA [None]
  - VOMITING [None]
